FAERS Safety Report 23989979 (Version 2)
Quarter: 2025Q1

REPORT INFORMATION
  Report Type: Spontaneous
  Country: US (occurrence: US)
  Receive Date: 20240619
  Receipt Date: 20250103
  Transmission Date: 20250408
  Serious: No
  Sender: SANOFI AVENTIS
  Company Number: US-SA-2023SA318583

PATIENT
  Age: 86 Year
  Sex: Female
  Weight: 82.55 kg

DRUGS (17)
  1. DUPIXENT [Suspect]
     Active Substance: DUPILUMAB
     Indication: Dermatitis atopic
     Route: 058
  2. DUPIXENT [Suspect]
     Active Substance: DUPILUMAB
     Dosage: 300 MG, QOW
     Route: 058
     Dates: start: 202310
  3. FLECAINIDE ACETATE [Concomitant]
     Active Substance: FLECAINIDE ACETATE
  4. GLIMEPIRIDE [Concomitant]
     Active Substance: GLIMEPIRIDE
  5. PANTOPRAZOLE SODIUM [Concomitant]
     Active Substance: PANTOPRAZOLE SODIUM
  6. FUROSEMIDE [Concomitant]
     Active Substance: FUROSEMIDE
  7. LISINOPRIL [Concomitant]
     Active Substance: LISINOPRIL
  8. SYNTHROID [Concomitant]
     Active Substance: LEVOTHYROXINE SODIUM
  9. GEMTESA [Concomitant]
     Active Substance: VIBEGRON
  10. PRAMIPEXOLE DIHYDROCHLORIDE [Concomitant]
     Active Substance: PRAMIPEXOLE DIHYDROCHLORIDE
  11. ALBUTEROL SULFATE [Concomitant]
     Active Substance: ALBUTEROL SULFATE
     Route: 055
  12. ATORVASTATIN [Concomitant]
     Active Substance: ATORVASTATIN
  13. LINZESS [Concomitant]
     Active Substance: LINACLOTIDE
  14. AZELASTINE [Concomitant]
     Active Substance: AZELASTINE
  15. DULOXETINE HYDROCHLORIDE [Concomitant]
     Active Substance: DULOXETINE HYDROCHLORIDE
  16. JANUVIA [Concomitant]
     Active Substance: SITAGLIPTIN PHOSPHATE
  17. CLOPIDOGREL BISULFATE [Concomitant]
     Active Substance: CLOPIDOGREL BISULFATE

REACTIONS (5)
  - Emotional distress [Not Recovered/Not Resolved]
  - Skin exfoliation [Not Recovered/Not Resolved]
  - Urticaria [Not Recovered/Not Resolved]
  - Rash papular [Not Recovered/Not Resolved]
  - Sensitive skin [Not Recovered/Not Resolved]

NARRATIVE: CASE EVENT DATE: 20240101
